FAERS Safety Report 10741496 (Version 1)
Quarter: 2015Q1

REPORT INFORMATION
  Report Type: Spontaneous
  Country: ES (occurrence: ES)
  Receive Date: 20150127
  Receipt Date: 20150127
  Transmission Date: 20150721
  Serious: Yes (Other)
  Sender: FDA-Public Use
  Company Number: ES-JNJFOC-20150115447

PATIENT
  Age: 85 Year
  Sex: Male

DRUGS (2)
  1. ZALDIAR [Suspect]
     Active Substance: ACETAMINOPHEN\TRAMADOL HYDROCHLORIDE
     Indication: PAIN
     Route: 048
     Dates: start: 2014
  2. MST CONTINUS [Interacting]
     Active Substance: MORPHINE SULFATE
     Indication: PAIN
     Route: 048
     Dates: start: 20141205

REACTIONS (5)
  - Hallucination, visual [Unknown]
  - Drug interaction [Unknown]
  - Agitation [Unknown]
  - Confusional state [Unknown]
  - Medication error [Unknown]

NARRATIVE: CASE EVENT DATE: 20141212
